FAERS Safety Report 7387455-8 (Version None)
Quarter: 2011Q1

REPORT INFORMATION
  Report Type: 
  Country: None (occurrence: None)
  Receive Date: 20110331
  Receipt Date: 20110323
  Transmission Date: 20110831
  Serious: Yes (Hospitalization, Other)
  Sender: FDA-Public Use
  Company Number: US-ELI_LILLY_AND_COMPANY-US201103002143

PATIENT
  Sex: Female

DRUGS (11)
  1. GLIPIZIDE [Concomitant]
     Indication: TYPE 2 DIABETES MELLITUS
     Dosage: 10 MG, DAILY (1/D)
     Route: 048
  2. FUROSEMIDE [Concomitant]
     Dosage: 40 MG, DAILY (1/D)
     Route: 048
  3. OXYBUTYNIN [Concomitant]
     Dosage: 5 MG, DAILY (1/D)
     Route: 048
  4. ASPIRIN [Concomitant]
     Dosage: 81 MG, DAILY (1/D)
     Route: 048
  5. KLOR-CON [Concomitant]
     Dosage: 20 MEQ, UNK
  6. BYETTA [Suspect]
     Indication: TYPE 2 DIABETES MELLITUS
     Dosage: 5 UG, 2/D
     Route: 058
  7. ALLOPURINOL [Concomitant]
     Indication: GOUT
     Dosage: 300 MG, DAILY (1/D)
     Route: 048
  8. BYETTA [Suspect]
     Dosage: 5 UG, 2/D
     Route: 058
  9. METFORMIN HCL [Concomitant]
     Indication: TYPE 2 DIABETES MELLITUS
  10. LEVOTHYROXINE SODIUM [Concomitant]
     Indication: THYROID DISORDER
     Dosage: 175 UG, EACH MORNING
     Route: 048
  11. BYETTA [Suspect]
     Dosage: 10 UG, 2/D
     Route: 058

REACTIONS (13)
  - BLOOD POTASSIUM INCREASED [None]
  - DIZZINESS [None]
  - FEELING JITTERY [None]
  - LUNG DISORDER [None]
  - TREMOR [None]
  - MALAISE [None]
  - RENAL FAILURE [None]
  - BLOOD GLUCOSE DECREASED [None]
  - COGNITIVE DISORDER [None]
  - SPEECH DISORDER [None]
  - BLOOD CALCIUM INCREASED [None]
  - SARCOIDOSIS [None]
  - WEIGHT DECREASED [None]
